FAERS Safety Report 13293989 (Version 2)
Quarter: 2017Q2

REPORT INFORMATION
  Report Type: Report from Study
  Country: BR (occurrence: BR)
  Receive Date: 20170303
  Receipt Date: 20170420
  Transmission Date: 20170830
  Serious: Yes (Hospitalization)
  Sender: FDA-Public Use
  Company Number: BR-BAYER-2017-037644

PATIENT
  Age: 61 Year
  Sex: Male

DRUGS (6)
  1. NEXAVAR [Suspect]
     Active Substance: SORAFENIB
     Indication: HEPATOCELLULAR CARCINOMA
     Dosage: 800 MG, QD
     Route: 048
     Dates: start: 20170215, end: 20170222
  2. NEXAVAR [Suspect]
     Active Substance: SORAFENIB
     Indication: METASTASES TO SPINE
  3. TRAMAL [Concomitant]
     Active Substance: TRAMADOL
     Indication: VERTEBRAL COLUMN MASS
  4. MORPHINE [Concomitant]
     Active Substance: MORPHINE
     Indication: VERTEBRAL COLUMN MASS
     Dosage: UNK
  5. NEXAVAR [Suspect]
     Active Substance: SORAFENIB
     Indication: METASTASES TO LUNG
  6. METADON [Concomitant]
     Active Substance: METHADONE HYDROCHLORIDE
     Indication: VERTEBRAL COLUMN MASS

REACTIONS (18)
  - Gastrointestinal disorder [None]
  - Weight decreased [Not Recovered/Not Resolved]
  - Pruritus [Recovered/Resolved with Sequelae]
  - Pulmonary oedema [Not Recovered/Not Resolved]
  - Infarction [Recovered/Resolved]
  - Pain in extremity [Recovered/Resolved with Sequelae]
  - Mediastinal mass [None]
  - Cough [Not Recovered/Not Resolved]
  - Pyrexia [Not Recovered/Not Resolved]
  - Blood test abnormal [Recovered/Resolved]
  - Pulmonary oedema [Not Recovered/Not Resolved]
  - Burning sensation [Recovered/Resolved with Sequelae]
  - Skin exfoliation [Recovered/Resolved with Sequelae]
  - Throat irritation [Recovered/Resolved]
  - Dyspnoea [Not Recovered/Not Resolved]
  - Asthenia [None]
  - Oral discomfort [Recovered/Resolved]
  - Hypophagia [None]

NARRATIVE: CASE EVENT DATE: 201702
